FAERS Safety Report 6189410-2 (Version None)
Quarter: 2009Q2

REPORT INFORMATION
  Report Type: 
  Country: None (occurrence: None)
  Receive Date: 20090512
  Receipt Date: 20090504
  Transmission Date: 20091009
  Serious: Yes (Other)
  Sender: FDA-Public Use
  Company Number: 2009SP009583

PATIENT
  Age: 27 Year
  Sex: Female
  Weight: 72 kg

DRUGS (4)
  1. DESLORATADINE [Suspect]
     Indication: HYPERSENSITIVITY
     Dosage: 1 DF; ; PO
     Route: 048
     Dates: start: 20090416, end: 20090417
  2. NASONEX [Suspect]
     Indication: HYPERSENSITIVITY
     Dosage: ; NAS
     Route: 045
     Dates: start: 20090416
  3. APSOMOL [Concomitant]
  4. VIANI MITE DISKUS [Concomitant]

REACTIONS (4)
  - GASTROINTESTINAL PAIN [None]
  - NAUSEA [None]
  - PHARYNGEAL OEDEMA [None]
  - RESPIRATORY DISTRESS [None]
